FAERS Safety Report 11904889 (Version 2)
Quarter: 2019Q3

REPORT INFORMATION
  Report Type: Spontaneous
  Country: US (occurrence: US)
  Receive Date: 20160108
  Receipt Date: 20190701
  Transmission Date: 20191004
  Serious: Yes (Hospitalization)
  Sender: FDA-Public Use
  Company Number: US-ROCHE-1506694

PATIENT
  Age: 51 Year
  Sex: Male

DRUGS (5)
  1. VASOPRESSIN. [Concomitant]
     Active Substance: VASOPRESSIN
     Dosage: 0.04UNITS/MIN
     Route: 042
  2. MILRINONE [Concomitant]
     Active Substance: MILRINONE
     Route: 041
  3. EPINEPHRINE. [Concomitant]
     Active Substance: EPINEPHRINE
     Dosage: 0.2 MICRO G/KG/MIN
     Route: 042
  4. ACTIVASE [Suspect]
     Active Substance: ALTEPLASE
     Indication: INTRACARDIAC THROMBUS
     Dosage: THE FIRST DOSE WAS ADMINISTERED 20 MINUTES AFTER THE HEPARIN DOSE AND CONSISTED OF A10-MG INTRAVENOU
     Route: 042
  5. HEPARIN [Concomitant]
     Active Substance: HEPARIN SODIUM
     Route: 042

REACTIONS (3)
  - Post procedural stroke [Unknown]
  - Haemorrhage [Unknown]
  - Splenic infarction [Unknown]
